FAERS Safety Report 24004623 (Version 2)
Quarter: 2024Q3

REPORT INFORMATION
  Report Type: Spontaneous
  Country: PS (occurrence: PS)
  Receive Date: 20240624
  Receipt Date: 20240701
  Transmission Date: 20241016
  Serious: Yes (Hospitalization, Other)
  Sender: ACCORD
  Company Number: PS-Accord-431132

PATIENT
  Age: 49 Year
  Sex: Male

DRUGS (3)
  1. CLOPIDOGREL [Suspect]
     Active Substance: CLOPIDOGREL BISULFATE
     Indication: Angina unstable
  2. ASPIRIN [Suspect]
     Active Substance: ASPIRIN
     Indication: Angina unstable
  3. HEPARIN [Suspect]
     Active Substance: HEPARIN SODIUM
     Indication: Angina unstable

REACTIONS (1)
  - Spontaneous splenic rupture [Recovered/Resolved]
